FAERS Safety Report 10479043 (Version 4)
Quarter: 2014Q4

REPORT INFORMATION
  Report Type: Spontaneous
  Country: DE (occurrence: DE)
  Receive Date: 20140926
  Receipt Date: 20141203
  Transmission Date: 20150528
  Serious: Yes (Hospitalization)
  Sender: FDA-Public Use
  Company Number: PHHY2014DE120960

PATIENT
  Sex: Male
  Weight: 64 kg

DRUGS (3)
  1. TORASEMIDE [Concomitant]
     Active Substance: TORSEMIDE
     Indication: OEDEMA
     Dosage: 5 MG, DAILY
     Route: 048
  2. GLIVEC [Suspect]
     Active Substance: IMATINIB MESYLATE
     Indication: CHRONIC MYELOID LEUKAEMIA
     Route: 065
  3. TASIGNA [Suspect]
     Active Substance: NILOTINIB
     Indication: CHRONIC MYELOID LEUKAEMIA
     Dosage: 200 MG, BID
     Route: 065
     Dates: start: 20131007, end: 20140804

REACTIONS (13)
  - Quality of life decreased [Recovered/Resolved]
  - Angina pectoris [Unknown]
  - Dyspnoea [Unknown]
  - Rash [Recovered/Resolved]
  - Fungal infection [Not Recovered/Not Resolved]
  - Myocardial infarction [Recovered/Resolved]
  - Malaise [Recovered/Resolved]
  - Aspartate aminotransferase increased [Unknown]
  - Pruritus [Recovered/Resolved]
  - Chest pain [Unknown]
  - Vomiting [Unknown]
  - Oral candidiasis [Recovered/Resolved]
  - Nausea [Unknown]

NARRATIVE: CASE EVENT DATE: 20140120
